FAERS Safety Report 21436173 (Version 3)
Quarter: 2022Q4

REPORT INFORMATION
  Report Type: Report from Study
  Country: US (occurrence: US)
  Receive Date: 20221010
  Receipt Date: 20221216
  Transmission Date: 20230112
  Serious: Yes (Death, Hospitalization)
  Sender: FDA-Public Use
  Company Number: US-EXELIXIS-CABO-22056581

PATIENT
  Age: 66 Year
  Sex: Male
  Weight: 102.95 kg

DRUGS (18)
  1. CABOMETYX [Suspect]
     Active Substance: CABOZANTINIB S-MALATE
     Indication: Clear cell renal cell carcinoma
     Dosage: 60 MG, QD
     Route: 048
     Dates: start: 20220729
  2. CABOMETYX [Suspect]
     Active Substance: CABOZANTINIB S-MALATE
     Dosage: 40 MG, QD
     Route: 048
     Dates: start: 20220823, end: 20221004
  3. ALBUTEROL [Concomitant]
     Active Substance: ALBUTEROL
  4. BACLOFEN [Concomitant]
     Active Substance: BACLOFEN
  5. COMPAZINE [Concomitant]
     Active Substance: PROCHLORPERAZINE MALEATE
  6. DOXYCYCLINE [Concomitant]
     Active Substance: DOXYCYCLINE
  7. FLOVENT [Concomitant]
     Active Substance: FLUTICASONE PROPIONATE
  8. FLUTICASONE [Concomitant]
     Active Substance: FLUTICASONE
  9. GABAPENTIN [Concomitant]
     Active Substance: GABAPENTIN
  10. Hair skin nails [Concomitant]
  11. LISINOPRIL [Concomitant]
     Active Substance: LISINOPRIL
  12. MIDODRINE [Concomitant]
     Active Substance: MIDODRINE
  13. DIETARY SUPPLEMENT [Concomitant]
     Active Substance: DIETARY SUPPLEMENT
  14. PRILOSEC [Concomitant]
     Active Substance: OMEPRAZOLE MAGNESIUM
  15. TAMSULOSIN [Concomitant]
     Active Substance: TAMSULOSIN
  16. TRAZODONE HYDROCHLORIDE [Concomitant]
     Active Substance: TRAZODONE HYDROCHLORIDE
  17. THIAMINE HYDROCHLORIDE [Concomitant]
     Active Substance: THIAMINE HYDROCHLORIDE
  18. ZOFRAN [Concomitant]
     Active Substance: ONDANSETRON HYDROCHLORIDE

REACTIONS (14)
  - Illness [Unknown]
  - Orthostatic hypotension [Unknown]
  - Hyponatraemia [Unknown]
  - Asthenia [Unknown]
  - Fatigue [Unknown]
  - Malnutrition [Unknown]
  - Failure to thrive [Unknown]
  - Malignant neoplasm progression [Fatal]
  - Bladder hypertrophy [Unknown]
  - Neck pain [Unknown]
  - Fluid retention [Unknown]
  - Constipation [Unknown]
  - Pleural effusion [Unknown]
  - Metastases to chest wall [Unknown]

NARRATIVE: CASE EVENT DATE: 20220927
